FAERS Safety Report 8773646 (Version 2)
Quarter: 2012Q4

REPORT INFORMATION
  Report Type: Report from Study
  Country: FR (occurrence: FR)
  Receive Date: 20120907
  Receipt Date: 20120917
  Transmission Date: 20130627
  Serious: Yes (Other)
  Sender: FDA-Public Use
  Company Number: FR-JNJFOC-20120814377

PATIENT
  Sex: Male
  Weight: 37.4 kg

DRUGS (2)
  1. REMICADE [Suspect]
     Indication: CROHN^S DISEASE
     Route: 042
     Dates: start: 20090403
  2. AZATHIOPRINE [Suspect]
     Indication: CROHN^S DISEASE
     Dates: start: 201007

REACTIONS (1)
  - Cellulitis [Recovered/Resolved]
